FAERS Safety Report 8074992-6 (Version None)
Quarter: 2012Q1

REPORT INFORMATION
  Report Type: 
  Country: None (occurrence: None)
  Receive Date: 20120127
  Receipt Date: 20120120
  Transmission Date: 20120608
  Serious: No
  Sender: FDA-Public Use
  Company Number: US-BIOGENIDEC-2011BI021863

PATIENT
  Sex: Female

DRUGS (5)
  1. AVONEX [Concomitant]
     Route: 030
  2. TYSABRI [Suspect]
     Indication: MULTIPLE SCLEROSIS
     Route: 042
     Dates: start: 20110523
  3. TRAMADOL HCL [Concomitant]
     Indication: PAIN
  4. AVONEX [Concomitant]
     Indication: MULTIPLE SCLEROSIS
     Route: 030
     Dates: start: 19970101
  5. NAMENDA [Concomitant]
     Indication: CONFUSIONAL STATE

REACTIONS (18)
  - PAIN IN EXTREMITY [None]
  - HYPOAESTHESIA [None]
  - ABDOMINAL PAIN UPPER [None]
  - VISION BLURRED [None]
  - COUGH [None]
  - ARTHRALGIA [None]
  - PAINFUL RESPIRATION [None]
  - CHEST DISCOMFORT [None]
  - DRUG INEFFECTIVE [None]
  - HEADACHE [None]
  - WHEEZING [None]
  - DYSPNOEA [None]
  - PLEURITIC PAIN [None]
  - EYE PAIN [None]
  - MUSCLE SPASMS [None]
  - FATIGUE [None]
  - DARK CIRCLES UNDER EYES [None]
  - BLOOD PRESSURE SYSTOLIC INCREASED [None]
